FAERS Safety Report 17292512 (Version 1)
Quarter: 2020Q1

REPORT INFORMATION
  Report Type: Spontaneous
  Country: CN (occurrence: CN)
  Receive Date: 20200121
  Receipt Date: 20200121
  Transmission Date: 20200409
  Serious: Yes (Other)
  Sender: FDA-Public Use
  Company Number: CN-BAYER-2019-233989

PATIENT
  Age: 22 Year
  Sex: Male
  Weight: 78 kg

DRUGS (1)
  1. IOPROMIDE. [Suspect]
     Active Substance: IOPROMIDE
     Indication: ANGIOCARDIOGRAM
     Dosage: 100 ML, ONCE
     Route: 042
     Dates: start: 20191203, end: 20191203

REACTIONS (6)
  - Cough [Recovered/Resolved]
  - Blood pressure increased [None]
  - Nasal obstruction [Recovered/Resolved]
  - Sensation of foreign body [Recovered/Resolved]
  - Throat irritation [Recovered/Resolved]
  - Blood pressure diastolic increased [None]

NARRATIVE: CASE EVENT DATE: 20191203
